FAERS Safety Report 10263042 (Version 2)
Quarter: 2014Q2

REPORT INFORMATION
  Report Type: Report from Study
  Country: US (occurrence: US)
  Receive Date: 20140626
  Receipt Date: 20140626
  Transmission Date: 20141212
  Serious: Yes (Death)
  Sender: FDA-Public Use
  Company Number: US-MYLANLABS-2013S1027995

PATIENT
  Age: 43 Year
  Sex: Female
  Weight: 132 kg

DRUGS (1)
  1. CLOZAPINE TABLETS [Suspect]
     Route: 048
     Dates: start: 2012, end: 2013

REACTIONS (1)
  - Foreign body aspiration [Fatal]
